FAERS Safety Report 5145328-5 (Version None)
Quarter: 2006Q4

REPORT INFORMATION
  Report Type: 
  Country: None (occurrence: None)
  Receive Date: 20061107
  Receipt Date: 20050510
  Transmission Date: 20070319
  Serious: Yes (Death, Hospitalization, Other)
  Sender: FDA-Public Use
  Company Number: FR-ELI_LILLY_AND_COMPANY-FR_050506393

PATIENT
  Age: 40 Year
  Sex: Female

DRUGS (5)
  1. ALIMTA [Suspect]
     Indication: LUNG NEOPLASM MALIGNANT
     Dosage: UNK, UNKNOWN
     Route: 042
  2. FOLIC ACID [Concomitant]
     Indication: VITAMIN SUPPLEMENTATION
     Dosage: UNK, UNKNOWN
     Route: 048
  3. VITAMIN B-12 [Concomitant]
     Indication: VITAMIN SUPPLEMENTATION
     Dosage: UNK, UNKNOWN
     Route: 030
  4. NON-STEROID ANTI-INFLAMMATORY DRUG [Concomitant]
     Indication: PYREXIA
     Dosage: UNK, UNKNOWN
     Route: 048
     Dates: start: 20041201
  5. MORPHINE [Concomitant]

REACTIONS (5)
  - ANALGESIC DRUG LEVEL INCREASED [None]
  - BRONCHIAL CARCINOMA [None]
  - MALIGNANT NEOPLASM PROGRESSION [None]
  - PANCYTOPENIA [None]
  - RENAL FAILURE [None]
